FAERS Safety Report 10380722 (Version 1)
Quarter: 2014Q1

REPORT INFORMATION
  Report Type: Spontaneous
  Country: US (occurrence: None)
  Receive Date: 20140306
  Receipt Date: 20140306
  Transmission Date: 20141002
  Serious: Yes (Other)
  Sender: FDA-Public Use
  Company Number: 163-21880-13111549

PATIENT
  Age: 75 Year
  Sex: Female
  Weight: 74.4 kg

DRUGS (8)
  1. REVLIMID (LENALIDOMIDE) (15 MILLIGRAM, CAPSULES) [Suspect]
     Indication: PLASMA CELL MYELOMA
     Dosage: 15 MG, 21 IN 28 D, PO
     Route: 048
     Dates: start: 201307
  2. FOLIC ACID [Concomitant]
  3. ASPIRIN ADULT LOW STRENGTH (ACETYLSALICYLIC ACID) [Concomitant]
  4. PRAVASTATIN SODIUM [Concomitant]
  5. VERAPAMIL HCL (VERAPAMIL HYDROCHLORIDE) [Concomitant]
  6. SERTRALINE HCL (SERTRALINE HYDROCHLORIDE) [Concomitant]
  7. LORAZEPAM [Concomitant]
  8. DEXAMETHASONE [Concomitant]

REACTIONS (1)
  - Vitamin D decreased [None]
